FAERS Safety Report 22661486 (Version 1)
Quarter: 2023Q2

REPORT INFORMATION
  Report Type: Spontaneous
  Country: FR (occurrence: FR)
  Receive Date: 20230630
  Receipt Date: 20230630
  Transmission Date: 20230722
  Serious: Yes (Death, Hospitalization, Other)
  Sender: FDA-Public Use
  Company Number: None

PATIENT
  Age: 95 Year
  Sex: Male
  Weight: 63.4 kg

DRUGS (8)
  1. ALTEPLASE [Interacting]
     Active Substance: ALTEPLASE
     Indication: Ischaemic stroke
     Dosage: 1 DF
     Route: 042
     Dates: start: 20230407, end: 20230407
  2. ALTEPLASE [Interacting]
     Active Substance: ALTEPLASE
     Dosage: 1 DF
     Route: 042
     Dates: start: 20230407, end: 20230407
  3. CLOPIDOGREL BISULFATE [Interacting]
     Active Substance: CLOPIDOGREL BISULFATE
     Indication: Thrombosis prophylaxis
     Dosage: 75 MG, QD
     Route: 065
     Dates: end: 20230407
  4. RAMIPRIL [Concomitant]
     Active Substance: RAMIPRIL
     Indication: Hypertension
     Dosage: 2.5 MG, QD
     Route: 048
     Dates: end: 20230407
  5. TIAPRIDE HYDROCHLORIDE [Concomitant]
     Active Substance: TIAPRIDE HYDROCHLORIDE
     Indication: Dementia
     Dosage: 20 MG, QD
     Route: 048
     Dates: end: 20230407
  6. ESOMEPRAZOLE [Concomitant]
     Active Substance: ESOMEPRAZOLE
     Indication: Gastritis prophylaxis
     Dosage: 40 MG, QD
     Route: 048
     Dates: end: 20230407
  7. FUROSEMIDE [Concomitant]
     Active Substance: FUROSEMIDE
     Indication: Hypertension
     Dosage: 80 MG, QD
     Route: 048
     Dates: end: 20230407
  8. BISOPROLOL FUMARATE [Concomitant]
     Active Substance: BISOPROLOL FUMARATE
     Indication: Atrial fibrillation
     Dosage: 2.5 MG, QD
     Route: 048
     Dates: end: 20230407

REACTIONS (2)
  - Cerebral haemorrhage [Fatal]
  - Drug interaction [Fatal]

NARRATIVE: CASE EVENT DATE: 20230408
